FAERS Safety Report 5393118-0 (Version None)
Quarter: 2007Q3

REPORT INFORMATION
  Report Type: 
  Country: None (occurrence: None)
  Receive Date: 20070719
  Receipt Date: 20070713
  Transmission Date: 20080115
  Serious: Yes (Other)
  Sender: FDA-Public Use
  Company Number: 2007SP006565

PATIENT
  Age: 42 Year
  Sex: Male
  Weight: 126.5536 kg

DRUGS (3)
  1. PEG-INTRON [Suspect]
     Indication: HEPATITIS C
     Dosage: 150 MCG;  SC
     Route: 058
     Dates: start: 20070314
  2. RIBAVIRIN [Suspect]
     Indication: HEPATITIS C
     Dosage: 1000 MG, QD; PO
     Route: 048
     Dates: start: 20070314
  3. CELEBREX [Concomitant]

REACTIONS (8)
  - ARTHRALGIA [None]
  - DEHYDRATION [None]
  - GASTROENTERITIS VIRAL [None]
  - HYPERHIDROSIS [None]
  - INSOMNIA [None]
  - MUSCLE TIGHTNESS [None]
  - MYALGIA [None]
  - PLATELET COUNT DECREASED [None]
